FAERS Safety Report 21877326 (Version 1)
Quarter: 2023Q1

REPORT INFORMATION
  Report Type: Spontaneous
  Country: US (occurrence: US)
  Receive Date: 20230118
  Receipt Date: 20230118
  Transmission Date: 20230418
  Serious: No
  Sender: FDA-Public Use
  Company Number: US-BRISTOL-MYERS SQUIBB COMPANY-2023-008066

PATIENT
  Age: 75 Year
  Sex: Male
  Weight: 113.9 kg

DRUGS (2)
  1. REVLIMID [Suspect]
     Active Substance: LENALIDOMIDE
     Indication: Plasma cell myeloma
     Dosage: FREQ : 1 CAPSULE FOR 21 DAYS  FOLLOWED BY 7 DAYS OFF
     Route: 048
     Dates: start: 202209
  2. BISACODYL [Concomitant]
     Active Substance: BISACODYL
     Indication: Product used for unknown indication

REACTIONS (1)
  - Blood creatine decreased [Unknown]

NARRATIVE: CASE EVENT DATE: 20230116
